FAERS Safety Report 8447202-5 (Version None)
Quarter: 2012Q2

REPORT INFORMATION
  Report Type: 
  Country: None (occurrence: None)
  Receive Date: 20120619
  Receipt Date: 20110613
  Transmission Date: 20120825
  Serious: No
  Sender: FDA-Public Use
  Company Number: US-PFIZER INC-K201100710

PATIENT
  Age: 48 Year
  Sex: Female
  Weight: 57.143 kg

DRUGS (4)
  1. LEVOXYL [Suspect]
     Indication: HYPOTHYROIDISM
     Dosage: 25 UG, 1X/DAY
     Route: 048
     Dates: start: 20090101, end: 20110101
  2. FEMRING [Concomitant]
     Indication: PREMATURE MENOPAUSE
     Dosage: UNK
     Route: 067
  3. NUVARING [Concomitant]
     Indication: PREMATURE MENOPAUSE
     Dosage: UNK
     Route: 067
  4. LEVOXYL [Suspect]
     Dosage: 25 MCG, QD 5X/W + 37.5 MCG, QD BIW
     Route: 048
     Dates: start: 20110201, end: 20110616

REACTIONS (11)
  - MUSCLE TIGHTNESS [None]
  - HEADACHE [None]
  - BRUXISM [None]
  - HYPERSENSITIVITY [None]
  - PALPITATIONS [None]
  - MENTAL IMPAIRMENT [None]
  - MIDDLE INSOMNIA [None]
  - BLOOD PRESSURE INCREASED [None]
  - FEELING ABNORMAL [None]
  - FLUSHING [None]
  - ABNORMAL SENSATION IN EYE [None]
